FAERS Safety Report 25746838 (Version 1)
Quarter: 2025Q3

REPORT INFORMATION
  Report Type: Report from Study
  Country: JP (occurrence: JP)
  Receive Date: 20250901
  Receipt Date: 20250901
  Transmission Date: 20251020
  Serious: Yes (Other)
  Sender: Haleon PLC
  Company Number: JP-HALEON-2193007

PATIENT
  Age: 53 Year
  Sex: Female
  Weight: 67 kg

DRUGS (2)
  1. ALLI [Suspect]
     Active Substance: ORLISTAT
     Indication: Product used for unknown indication
     Dosage: TIMING OF ADMINISTRATION: DURING TO WITHIN 1 HOUR AFTER EATING
     Route: 048
     Dates: start: 20240628
  2. ALLI [Suspect]
     Active Substance: ORLISTAT
     Dosage: TIMING OF ADMINISTRATION: DURING TO WITHIN 1 HOUR AFTER EATING
     Route: 048

REACTIONS (4)
  - Diverticulitis [Recovered/Resolved]
  - Cystitis [Recovered/Resolved]
  - Abdominal pain [Recovered/Resolved]
  - Haematuria [Recovered/Resolved]

NARRATIVE: CASE EVENT DATE: 20240712
